FAERS Safety Report 4726330-1 (Version None)
Quarter: 2005Q3

REPORT INFORMATION
  Report Type: 
  Country: None (occurrence: None)
  Receive Date: 20050725
  Receipt Date: 20050712
  Transmission Date: 20060218
  Serious: Yes (Other)
  Sender: FDA-Public Use
  Company Number: 2005101464

PATIENT
  Age: 27 Year
  Sex: Female

DRUGS (4)
  1. NEURONTIN [Suspect]
     Indication: EPILEPSY
  2. TOPAMAX [Concomitant]
     Indication: EPILEPSY
  3. KEPPRA [Suspect]
     Indication: EPILEPSY
  4. TYLENOL (PARACETAMOL) [Concomitant]

REACTIONS (2)
  - ABORTION SPONTANEOUS [None]
  - DRUG EXPOSURE DURING PREGNANCY [None]
